FAERS Safety Report 6955835-8 (Version None)
Quarter: 2010Q3

REPORT INFORMATION
  Report Type: 
  Country: None (occurrence: None)
  Receive Date: 20100830
  Receipt Date: 20100817
  Transmission Date: 20110219
  Serious: Yes (Hospitalization, Other)
  Sender: FDA-Public Use
  Company Number: US-ROCHE-722580

PATIENT
  Sex: Male

DRUGS (2)
  1. AVASTIN [Suspect]
     Indication: COLORECTAL CANCER
     Route: 065
     Dates: start: 20070501, end: 20080501
  2. FOLFOX REGIMEN [Suspect]
     Indication: COLORECTAL CANCER
     Dosage: DRUG REPORTED FOLFOX4 OR FOLFOX6
     Route: 065
     Dates: start: 20070501, end: 20080501

REACTIONS (3)
  - ANAEMIA [None]
  - COMA [None]
  - MEMORY IMPAIRMENT [None]
